FAERS Safety Report 7792032-0 (Version None)
Quarter: 2011Q3

REPORT INFORMATION
  Report Type: 
  Country: None (occurrence: None)
  Receive Date: 20110929
  Receipt Date: 20110915
  Transmission Date: 20111222
  Serious: Yes (Other)
  Sender: FDA-Public Use
  Company Number: 2011S1001346

PATIENT
  Age: 42 Year
  Sex: Female

DRUGS (1)
  1. LIVALO [Suspect]

REACTIONS (1)
  - WHITE BLOOD CELL COUNT DECREASED [None]
